FAERS Safety Report 4767197-5 (Version None)
Quarter: 2005Q3

REPORT INFORMATION
  Report Type: 
  Country: None (occurrence: None)
  Receive Date: 20050913
  Receipt Date: 20050825
  Transmission Date: 20060218
  Serious: Yes (Hospitalization)
  Sender: FDA-Public Use
  Company Number: PHBS2005CO12489

PATIENT
  Age: 73 Year
  Sex: Male

DRUGS (4)
  1. DIOVAN HCT [Suspect]
     Indication: HYPERTENSION
     Dosage: VAL 160 / HCT 12.5 MG, QD
     Route: 048
     Dates: start: 20050424
  2. PLAVIX [Concomitant]
     Dosage: 1 DF, QD
     Route: 048
  3. METOPROLOL [Concomitant]
     Dosage: 100 MG, TID
  4. BAYPRESS [Concomitant]
     Indication: HYPERTENSION
     Dosage: 10 MG, QD
     Dates: start: 20050601

REACTIONS (7)
  - BACK PAIN [None]
  - BLOOD PRESSURE INCREASED [None]
  - CATHETERISATION CARDIAC [None]
  - DYSPNOEA [None]
  - PULMONARY OEDEMA [None]
  - SPEECH DISORDER [None]
  - STENT PLACEMENT [None]
